FAERS Safety Report 23347262 (Version 3)
Quarter: 2024Q1

REPORT INFORMATION
  Report Type: Spontaneous
  Country: US (occurrence: US)
  Receive Date: 20231228
  Receipt Date: 20240301
  Transmission Date: 20240410
  Serious: Yes (Other)
  Sender: FDA-Public Use
  Company Number: US-PFIZER INC-PV202300206251

PATIENT
  Age: 77 Year
  Sex: Female

DRUGS (1)
  1. IBRANCE [Suspect]
     Active Substance: PALBOCICLIB
     Dosage: 100 MG

REACTIONS (7)
  - Second primary malignancy [Unknown]
  - Neoplasm malignant [Unknown]
  - Abdominal discomfort [Unknown]
  - Middle insomnia [Unknown]
  - Inappropriate schedule of product administration [Unknown]
  - Renal disorder [Unknown]
  - Cancer pain [Unknown]
